FAERS Safety Report 7941079-X (Version None)
Quarter: 2011Q4

REPORT INFORMATION
  Report Type: 
  Country: None (occurrence: None)
  Receive Date: 20111122
  Receipt Date: 20111111
  Transmission Date: 20120403
  Serious: Yes (Other)
  Sender: FDA-Public Use
  Company Number: ADR-2011-10764

PATIENT
  Sex: Female

DRUGS (1)
  1. BACLOFEN [Suspect]
     Indication: MUSCLE SPASTICITY
     Dosage: MCG, DAILY, INTRATHECAL
     Route: 039

REACTIONS (6)
  - MUSCLE SPASMS [None]
  - IMPLANT SITE PAIN [None]
  - IMPLANT SITE EFFUSION [None]
  - PAIN [None]
  - INTRACRANIAL HYPOTENSION [None]
  - IMPLANT SITE SWELLING [None]
